FAERS Safety Report 8844740 (Version 3)
Quarter: 2013Q1

REPORT INFORMATION
  Report Type: Spontaneous
  Country: US (occurrence: US)
  Receive Date: 20121017
  Receipt Date: 20130115
  Transmission Date: 20140127
  Serious: No
  Sender: FDA-Public Use
  Company Number: US-PFIZER INC-2012257303

PATIENT
  Sex: Female

DRUGS (1)
  1. GABAPENTIN [Suspect]
     Dosage: 600 MG, UNK

REACTIONS (3)
  - Malaise [Unknown]
  - Nerve injury [Unknown]
  - Drug ineffective [Unknown]
